FAERS Safety Report 7030678-8 (Version None)
Quarter: 2010Q4

REPORT INFORMATION
  Report Type: 
  Country: None (occurrence: None)
  Receive Date: 20101006
  Receipt Date: 20100924
  Transmission Date: 20110411
  Serious: Yes (Other)
  Sender: FDA-Public Use
  Company Number: SE-PFIZER INC-2010098906

PATIENT
  Age: 54 Year
  Sex: Male

DRUGS (5)
  1. DETRUSITOL [Suspect]
     Indication: MICTURITION URGENCY
     Dosage: 2 MG, UNK
     Route: 048
     Dates: start: 20100804
  2. DETRUSITOL [Suspect]
     Indication: INCONTINENCE
  3. ZOLPIDEM TARTRATE [Concomitant]
     Dosage: UNK
  4. TRIMEPRAZINE TAB [Concomitant]
     Dosage: UNK
  5. LITHIUM [Concomitant]
     Dosage: UNK

REACTIONS (1)
  - GOUT [None]
